FAERS Safety Report 6748158-3 (Version None)
Quarter: 2010Q2

REPORT INFORMATION
  Report Type: 
  Country: None (occurrence: None)
  Receive Date: 20100531
  Receipt Date: 20100526
  Transmission Date: 20101027
  Serious: Yes (Life-Threatening, Hospitalization)
  Sender: FDA-Public Use
  Company Number: PL-BRISTOL-MYERS SQUIBB COMPANY-14779367

PATIENT
  Age: 39 Year
  Sex: Male
  Weight: 140 kg

DRUGS (2)
  1. ABILIFY [Suspect]
     Indication: SCHIZOPHRENIA
     Route: 048
     Dates: start: 20080521, end: 20080629
  2. TISERCIN [Concomitant]
     Dates: start: 20081001

REACTIONS (1)
  - VENOUS THROMBOSIS [None]
